FAERS Safety Report 7244924-9 (Version None)
Quarter: 2011Q1

REPORT INFORMATION
  Report Type: 
  Country: None (occurrence: None)
  Receive Date: 20110126
  Receipt Date: 20110111
  Transmission Date: 20110831
  Serious: Yes (Hospitalization, Disabling)
  Sender: FDA-Public Use
  Company Number: FI-ELI_LILLY_AND_COMPANY-FI201101002590

PATIENT
  Sex: Female

DRUGS (5)
  1. MADOPAR [Concomitant]
     Indication: PARKINSON'S DISEASE
  2. PANADOL [Concomitant]
     Indication: PAIN
  3. CALCICHEW [Concomitant]
     Indication: MINERAL SUPPLEMENTATION
  4. FORTEO [Suspect]
     Indication: OSTEOPOROSIS
     Dosage: 20 UG, DAILY (1/D)
     Route: 058
     Dates: start: 20100917, end: 20110105
  5. THYROXIN [Concomitant]
     Indication: HYPOTHYROIDISM

REACTIONS (1)
  - MUSCULOSKELETAL STIFFNESS [None]
